FAERS Safety Report 4617056-3 (Version None)
Quarter: 2005Q1

REPORT INFORMATION
  Report Type: 
  Country: None (occurrence: None)
  Receive Date: 20050323
  Receipt Date: 20050311
  Transmission Date: 20050727
  Serious: Yes (Hospitalization)
  Sender: FDA-Public Use
  Company Number: US-BRISTOL-MYERS SQUIBB COMPANY-12895124

PATIENT
  Age: 61 Year
  Sex: Male
  Weight: 63 kg

DRUGS (2)
  1. CISPLATIN [Suspect]
     Indication: SQUAMOUS CELL CARCINOMA
     Dosage: 1ST DOSE: 31JAN05
     Route: 042
     Dates: start: 20050207, end: 20050207
  2. CAMPTOSAR [Suspect]
     Indication: SQUAMOUS CELL CARCINOMA
     Dosage: 1ST DOSE: 31JAN05
     Route: 042
     Dates: start: 20050207, end: 20050207

REACTIONS (3)
  - DEHYDRATION [None]
  - DIARRHOEA [None]
  - FEBRILE NEUTROPENIA [None]
